FAERS Safety Report 12010375 (Version 2)
Quarter: 2016Q1

REPORT INFORMATION
  Report Type: Spontaneous
  Country: US (occurrence: US)
  Receive Date: 20160205
  Receipt Date: 20160317
  Transmission Date: 20160526
  Serious: Yes (Other)
  Sender: FDA-Public Use
  Company Number: US-PFIZER INC-2016067707

PATIENT
  Age: 66 Year
  Sex: Female
  Weight: 59 kg

DRUGS (1)
  1. PREMPRO [Suspect]
     Active Substance: ESTROGENS, CONJUGATED\MEDROXYPROGESTERONE ACETATE
     Indication: HORMONE REPLACEMENT THERAPY
     Dosage: 0.3MG/1.5MG PILL, 1 DAILY
     Route: 048

REACTIONS (3)
  - Asthenia [Not Recovered/Not Resolved]
  - Blindness [Not Recovered/Not Resolved]
  - Malaise [Not Recovered/Not Resolved]
